FAERS Safety Report 5578436-5 (Version None)
Quarter: 2007Q4

REPORT INFORMATION
  Report Type: 
  Country: None (occurrence: None)
  Receive Date: 20071227
  Receipt Date: 20071217
  Transmission Date: 20080405
  Serious: Yes (Other)
  Sender: FDA-Public Use
  Company Number: 2007SP022295

PATIENT
  Age: 48 Year
  Sex: Female
  Weight: 69.8539 kg

DRUGS (11)
  1. PEG-INTRON [Suspect]
     Indication: HEPATITIS C
     Dosage: 120 MCG; QW; SC
     Route: 058
     Dates: start: 20070407
  2. RIBAVIRIN [Suspect]
     Indication: HEPATITIS C
     Dosage: 1000 MG; QD; PO
     Route: 048
     Dates: start: 20070407
  3. EPOGEN [Suspect]
     Indication: ANAEMIA
     Dates: start: 20070401
  4. INSULIN PUMP [Suspect]
     Dates: start: 20071001
  5. LIPITOR [Concomitant]
  6. SYNTHROID [Concomitant]
  7. HUMALOG [Concomitant]
  8. WELLBUTRIN [Concomitant]
  9. ZESTRIL [Concomitant]
  10. COMPAZINE [Concomitant]
  11. ACYCLOVIR [Concomitant]

REACTIONS (10)
  - ALOPECIA [None]
  - ANAEMIA [None]
  - ANXIETY [None]
  - ASTHENIA [None]
  - BLOOD GLUCOSE INCREASED [None]
  - CONTUSION [None]
  - DEVICE OCCLUSION [None]
  - GLYCOSYLATED HAEMOGLOBIN INCREASED [None]
  - HYPOGLYCAEMIA [None]
  - KETOACIDOSIS [None]
